FAERS Safety Report 15850922 (Version 3)
Quarter: 2019Q1

REPORT INFORMATION
  Report Type: Other
  Country: PT (occurrence: PT)
  Receive Date: 20190121
  Receipt Date: 20190325
  Transmission Date: 20190417
  Serious: Yes (Hospitalization, Other)
  Sender: FDA-Public Use
  Company Number: PT-PROVELL PHARMACEUTICALS-2061534

PATIENT
  Age: 59 Year
  Sex: Female

DRUGS (5)
  1. EUTHYROX [Suspect]
     Active Substance: LEVOTHYROXINE SODIUM
  2. EUTHYROX [Suspect]
     Active Substance: LEVOTHYROXINE SODIUM
  3. METFORMIN [Suspect]
     Active Substance: METFORMIN HYDROCHLORIDE
  4. EUTHYROX [Suspect]
     Active Substance: LEVOTHYROXINE SODIUM
     Indication: HYPOTHYROIDISM
  5. EUTHYROX [Suspect]
     Active Substance: LEVOTHYROXINE SODIUM
     Indication: WEIGHT DECREASED

REACTIONS (6)
  - Off label use [None]
  - Hyperthyroidism [None]
  - Overdose [None]
  - Hypercoagulation [Recovered/Resolved]
  - Cerebral haemorrhage [Recovered/Resolved]
  - Intracranial venous sinus thrombosis [Recovered/Resolved]
